FAERS Safety Report 13667955 (Version 1)
Quarter: 2017Q2

REPORT INFORMATION
  Report Type: Spontaneous
  Country: US (occurrence: US)
  Receive Date: 20170620
  Receipt Date: 20170620
  Transmission Date: 20170830
  Serious: Yes (Other)
  Sender: FDA-Public Use
  Company Number: US-DRREDDYS-USA/USA/17/0091428

PATIENT
  Age: 67 Year
  Sex: Male

DRUGS (2)
  1. AZACITIDINE. [Suspect]
     Active Substance: AZACITIDINE
     Indication: MYELOPROLIFERATIVE NEOPLASM
  2. AZACITIDINE. [Suspect]
     Active Substance: AZACITIDINE
     Indication: MYELOFIBROSIS
     Route: 065

REACTIONS (4)
  - Asthenia [Unknown]
  - Pyrexia [Unknown]
  - Acute myeloid leukaemia [Unknown]
  - Pancytopenia [Unknown]
